FAERS Safety Report 10163928 (Version 1)
Quarter: 2014Q2

REPORT INFORMATION
  Report Type: Spontaneous
  Country: US (occurrence: US)
  Receive Date: 20140510
  Receipt Date: 20140510
  Transmission Date: 20141212
  Serious: No
  Sender: FDA-Public Use
  Company Number: US-BRISTOL-MYERS SQUIBB COMPANY-19638923

PATIENT
  Age: 52 Year
  Sex: Female
  Weight: 87.07 kg

DRUGS (4)
  1. BYETTA [Suspect]
     Indication: TYPE 2 DIABETES MELLITUS
     Dosage: BEFORE:5MCG BID?DOSE INCREASED:10 MCG
     Route: 058
     Dates: start: 2011, end: 201305
  2. METFORMIN [Concomitant]
  3. HUMALOG [Concomitant]
  4. LANTUS [Concomitant]
     Dosage: 1DF:40 UNITS

REACTIONS (2)
  - Weight decreased [Unknown]
  - Decreased appetite [Unknown]
